FAERS Safety Report 7776885 (Version 3)
Quarter: 2012Q4

REPORT INFORMATION
  Report Type: 
  Country: US (occurrence: US)
  Receive Date: 20110127
  Receipt Date: 20120905
  Transmission Date: 20130627
  Serious: Yes (Hospitalization, Disabling)
  Sender: FDA-Public Use
  Company Number: US-BAYER-2011-007750

PATIENT
  Age: 38 Year
  Sex: Female
  Weight: 90.7 kg

DRUGS (4)
  1. YASMIN [Suspect]
     Dosage: UNK
     Dates: start: 200906, end: 200908
  2. COBALAMINE COMBINATIONS MT [Concomitant]
     Dosage: Once a month
  3. TYLENOL [Concomitant]
  4. JUNEL FE [Concomitant]

REACTIONS (3)
  - Cerebrovascular accident [None]
  - Pain [None]
  - Emotional distress [None]
